FAERS Safety Report 20961950 (Version 23)
Quarter: 2025Q4

REPORT INFORMATION
  Report Type: Report from Study
  Country: EU (occurrence: EU)
  Receive Date: 20220615
  Receipt Date: 20251010
  Transmission Date: 20260118
  Serious: Yes (Hospitalization, Other)
  Sender: PFIZER
  Company Number: EU-PFM-2022-05019

PATIENT
  Age: 83 Year
  Sex: Female

DRUGS (12)
  1. ENCORAFENIB [Suspect]
     Active Substance: ENCORAFENIB
     Indication: Malignant melanoma
     Dosage: 450 MG, 1X PER DAY
     Route: 048
     Dates: start: 20220521, end: 20220603
  2. ENCORAFENIB [Suspect]
     Active Substance: ENCORAFENIB
     Dosage: 225 MG, QD (1/DAY) (75 MG 0-0-3)
     Route: 048
     Dates: start: 20220613
  3. ENCORAFENIB [Suspect]
     Active Substance: ENCORAFENIB
     Dosage: 450 MG, QD (1/DAY)
     Route: 048
     Dates: start: 20220701
  4. ENCORAFENIB [Suspect]
     Active Substance: ENCORAFENIB
     Dosage: 175 MG, QD (1/DAY)
     Route: 048
     Dates: start: 20220714, end: 20221230
  5. MEKTOVI [Suspect]
     Active Substance: BINIMETINIB
     Indication: Malignant melanoma
     Dosage: 45 MG, BID (2/DAY)
     Route: 048
     Dates: start: 20220521, end: 20220603
  6. MEKTOVI [Suspect]
     Active Substance: BINIMETINIB
     Dosage: 22.5 MG, BID (2/DAY)
     Route: 048
     Dates: start: 20220613
  7. MEKTOVI [Suspect]
     Active Substance: BINIMETINIB
     Dosage: 15 MG, BID  (2/DAY)
     Route: 048
     Dates: start: 20220714, end: 20221230
  8. ATORVASTATIN [Concomitant]
     Active Substance: ATORVASTATIN
     Dosage: UNK
     Route: 065
  9. ASPIRIN [Concomitant]
     Active Substance: ASPIRIN
     Dosage: UNK
     Route: 065
  10. METOPROLOL [Concomitant]
     Active Substance: METOPROLOL
     Dosage: UNK
     Route: 065
  11. AMLODIPINE [Concomitant]
     Active Substance: AMLODIPINE BESYLATE
     Dosage: UNK
     Route: 065
  12. TORSEMIDE [Concomitant]
     Active Substance: TORSEMIDE
     Dosage: UNK
     Route: 065

REACTIONS (8)
  - Cytomegalovirus infection [Recovered/Resolved]
  - Acute kidney injury [Recovered/Resolved]
  - Lipase increased [Recovered/Resolved]
  - Nausea [Recovered/Resolved]
  - Dizziness [Recovered/Resolved]
  - Muscular weakness [Recovered/Resolved]
  - Pancreatitis [Recovered/Resolved]
  - Gastritis [Recovered/Resolved]

NARRATIVE: CASE EVENT DATE: 20220521
